FAERS Safety Report 9519004 (Version 1)
Quarter: 2013Q3

REPORT INFORMATION
  Report Type: Spontaneous
  Country: US (occurrence: US)
  Receive Date: 20130912
  Receipt Date: 20130912
  Transmission Date: 20140515
  Serious: Yes (Other)
  Sender: FDA-Public Use
  Company Number: US-PFIZER INC-2013258198

PATIENT
  Sex: 0

DRUGS (2)
  1. LEVOXYL [Suspect]
     Dosage: UNK
     Dates: start: 1997, end: 2013
  2. SYNTHROID [Suspect]
     Dosage: UNK
     Dates: start: 2013

REACTIONS (6)
  - Hypertension [Unknown]
  - Arthropathy [Unknown]
  - Abdominal distension [Unknown]
  - Memory impairment [Unknown]
  - Pain [Unknown]
  - Depression [Unknown]
